FAERS Safety Report 10380470 (Version 2)
Quarter: 2014Q3

REPORT INFORMATION
  Report Type: Report from Study
  Country: US (occurrence: US)
  Receive Date: 20140813
  Receipt Date: 20140826
  Transmission Date: 20150326
  Serious: Yes (Death, Hospitalization)
  Sender: FDA-Public Use
  Company Number: US-JNJFOC-20140809979

PATIENT
  Sex: Female

DRUGS (24)
  1. PREDNISONE. [Concomitant]
     Active Substance: PREDNISONE
     Dosage: 1X OR ADJUST AS NEEDED
     Route: 065
  2. PREVACID [Concomitant]
     Active Substance: LANSOPRAZOLE
     Route: 065
  3. ALBUTEROL. [Concomitant]
     Active Substance: ALBUTEROL
     Dosage: 2 PUFFS EVERY 4 HORS AS NEEDED
     Route: 065
  4. ZESTRIL [Concomitant]
     Active Substance: LISINOPRIL
     Route: 065
  5. XARELTO [Suspect]
     Active Substance: RIVAROXABAN
     Indication: PRODUCT USED FOR UNKNOWN INDICATION
     Route: 048
     Dates: start: 201304
  6. PRILOSEC [Concomitant]
     Active Substance: OMEPRAZOLE MAGNESIUM
     Route: 065
  7. VICODIN [Concomitant]
     Active Substance: ACETAMINOPHEN\HYDROCODONE BITARTRATE
     Dosage: 5-500 AS NEEDED
     Route: 065
  8. KLOR-CON [Concomitant]
     Active Substance: POTASSIUM CHLORIDE
     Dosage: M20
     Route: 065
  9. CALTRATE [Concomitant]
     Active Substance: CALCIUM CARBONATE
     Dosage: 600 MG + D
     Route: 065
  10. CATAPRES [Concomitant]
     Active Substance: CLONIDINE HYDROCHLORIDE
     Route: 065
  11. ASA [Concomitant]
     Active Substance: ASPIRIN
     Route: 065
  12. ENBREL [Concomitant]
     Active Substance: ETANERCEPT
     Indication: RHEUMATOID ARTHRITIS
     Route: 065
     Dates: start: 2012
  13. ZOLOFT [Concomitant]
     Active Substance: SERTRALINE HYDROCHLORIDE
     Route: 065
  14. ATROVENT [Concomitant]
     Active Substance: IPRATROPIUM BROMIDE
     Dosage: 2 PUFFS 4X DAILY
     Route: 065
  15. TIZANIDINE HCL [Concomitant]
     Active Substance: TIZANIDINE HYDROCHLORIDE
     Indication: MUSCLE SPASMS
     Dosage: EVERY 6 HOURS
     Route: 065
     Dates: start: 20131220
  16. LOPRESSOR [Concomitant]
     Active Substance: METOPROLOL TARTRATE
     Route: 065
  17. HYDROCODONE/ACETAMINOPHEN [Concomitant]
     Active Substance: ACETAMINOPHEN\HYDROCODONE
     Indication: PAIN
     Dosage: 120 EVERY 4 HOURS
     Route: 065
     Dates: start: 20131223
  18. LASIX [Concomitant]
     Active Substance: FUROSEMIDE
     Route: 065
  19. XANAX [Concomitant]
     Active Substance: ALPRAZOLAM
     Route: 065
  20. FOLIC ACID. [Concomitant]
     Active Substance: FOLIC ACID
     Route: 065
  21. NYSTATIN ORAL SUSPENSION [Concomitant]
     Dosage: 1000 PER ML
     Route: 048
  22. DIFLUCAN [Concomitant]
     Active Substance: FLUCONAZOLE
     Route: 065
  23. LIPITOR [Concomitant]
     Active Substance: ATORVASTATIN CALCIUM
     Route: 065
  24. VITAMIN B12 [Concomitant]
     Active Substance: CYANOCOBALAMIN
     Route: 065

REACTIONS (7)
  - Single functional kidney [Unknown]
  - Vomiting [Unknown]
  - Influenza [Unknown]
  - Neoplasm malignant [Fatal]
  - Nausea [Unknown]
  - Femoral artery occlusion [Unknown]
  - Spinal disorder [Unknown]

NARRATIVE: CASE EVENT DATE: 2013
